FAERS Safety Report 7188114-7 (Version None)
Quarter: 2010Q4

REPORT INFORMATION
  Report Type: 
  Country: None (occurrence: None)
  Receive Date: 20101222
  Receipt Date: 20101220
  Transmission Date: 20110411
  Serious: Yes (Life-Threatening)
  Sender: FDA-Public Use
  Company Number: FR-GILEAD-2010-0034605

PATIENT
  Sex: Female
  Weight: 65 kg

DRUGS (12)
  1. TENOFOVIR DISOPROXIL FUMARATE [Suspect]
     Indication: HIV INFECTION
  2. LAMIVUDINE [Concomitant]
     Indication: HIV INFECTION
  3. RALTEGRAVIR [Concomitant]
  4. TACROLIMUS [Concomitant]
     Indication: LIVER TRANSPLANT
     Dates: start: 20100922
  5. CELLCEPT [Concomitant]
     Indication: LIVER TRANSPLANT
     Dates: start: 20100922
  6. PREDNISONE [Concomitant]
     Indication: LIVER TRANSPLANT
     Dates: start: 20100922
  7. VALACICLOVIR [Concomitant]
     Indication: PROPHYLAXIS
     Dates: start: 20100922
  8. MOXIFLOXACIN [Concomitant]
     Indication: TUBERCULOSIS
     Dates: start: 20100927
  9. MYAMBUTOL [Concomitant]
     Indication: TUBERCULOSIS
     Dates: start: 20100927
  10. AMLODIPINE [Concomitant]
     Indication: PROPHYLAXIS
     Dates: start: 20100927
  11. ESOMEPRAZOLE [Concomitant]
     Indication: PROPHYLAXIS
     Dates: start: 20100927
  12. ENOXAPARIN SODIUM [Concomitant]
     Indication: PROPHYLAXIS
     Dates: start: 20100922

REACTIONS (1)
  - HEPATIC ARTERY THROMBOSIS [None]
